FAERS Safety Report 4685057-5 (Version None)
Quarter: 2005Q2

REPORT INFORMATION
  Report Type: 
  Country: None (occurrence: None)
  Receive Date: 20050608
  Receipt Date: 20050428
  Transmission Date: 20051028
  Serious: Yes (Other)
  Sender: FDA-Public Use
  Company Number: GB-NOVOPROD-243855

PATIENT
  Sex: Female
  Weight: 60 kg

DRUGS (17)
  1. NOVORAPID [Suspect]
     Indication: INSULIN-REQUIRING TYPE II DIABETES MELLITUS
     Dosage: 48 IU, QD
     Route: 058
     Dates: start: 20050308
  2. LEVEMIR [Suspect]
     Indication: INSULIN-REQUIRING TYPE II DIABETES MELLITUS
     Dosage: 32 IU, QD
     Route: 058
     Dates: start: 20050308
  3. CLOTRIMAZOLE [Concomitant]
     Dosage: UNK, PRN
     Route: 061
  4. METFORMIN [Concomitant]
     Dosage: 500 MG, TID
     Route: 048
  5. ASPIRIN [Concomitant]
     Dosage: 75 MG, QD
     Route: 048
  6. RAMIPRIL [Concomitant]
     Dosage: 5 MG, BID
     Route: 048
  7. PRAVASTATIN [Concomitant]
     Dosage: 40 MG, QD
     Route: 048
  8. CO-CODAMOL [Concomitant]
     Dosage: 4 TAB, QD
     Route: 048
  9. FLUOXETINE [Concomitant]
     Dosage: 20 MG, QD
     Route: 048
  10. BENDROFLUAZIDE [Concomitant]
     Dosage: 2.5 MG, QD
     Route: 048
  11. SALMETEROL [Concomitant]
     Dosage: 2 PUFF, TID
     Route: 055
  12. BECONASE [Concomitant]
     Dosage: 2 PUFF, TID
     Route: 055
  13. DORZOLAMIDE [Concomitant]
     Dosage: 2 %, BID
     Route: 057
  14. ACTRAPID [Concomitant]
     Indication: INSULIN-REQUIRING TYPE II DIABETES MELLITUS
  15. SALBUTAMOL [Concomitant]
     Dosage: 4 UNK, QID
  16. ERYTHROMYCIN [Concomitant]
     Dosage: 500 MG, QID
  17. SIMPLE LINCTUS [Concomitant]
     Dosage: UNK, PRN

REACTIONS (1)
  - DYSPNOEA [None]
